FAERS Safety Report 7029931-3 (Version None)
Quarter: 2010Q4

REPORT INFORMATION
  Report Type: 
  Country: None (occurrence: None)
  Receive Date: 20101006
  Receipt Date: 20100903
  Transmission Date: 20110411
  Serious: No
  Sender: FDA-Public Use
  Company Number: US-BAYER-201025239NA

PATIENT
  Age: 40 Year
  Sex: Female
  Weight: 115 kg

DRUGS (1)
  1. MIRENA [Suspect]
     Indication: PRODUCT USED FOR UNKNOWN INDICATION
     Dosage: FREQUENCY: CONTINUOUS. THE PHYSICIAN REPORTED A DAMAGE TO MIRENA T-BODY
     Route: 015
     Dates: start: 20100527, end: 20100527

REACTIONS (1)
  - PROCEDURAL PAIN [None]
